FAERS Safety Report 20579884 (Version 2)
Quarter: 2022Q1

REPORT INFORMATION
  Report Type: Report from Study
  Country: US (occurrence: US)
  Receive Date: 20220310
  Receipt Date: 20220323
  Transmission Date: 20220424
  Serious: Yes (Hospitalization)
  Sender: FDA-Public Use
  Company Number: US-PFIZER INC-202200279715

PATIENT
  Age: 79 Year
  Sex: Female
  Weight: 71.7 kg

DRUGS (14)
  1. ABROCITINIB [Suspect]
     Active Substance: ABROCITINIB
     Indication: Dermatitis atopic
     Dosage: 100 MG, 1X/DAY
     Route: 048
     Dates: start: 20190504, end: 20220126
  2. METFORMIN [Concomitant]
     Active Substance: METFORMIN HYDROCHLORIDE
     Indication: Type 2 diabetes mellitus
     Dosage: 500 MG, 2X/DAY
     Route: 048
     Dates: start: 1980
  3. HYDROXYZINE [Concomitant]
     Active Substance: HYDROXYZINE HYDROCHLORIDE
     Indication: Seasonal allergy
     Dosage: 12.5 MG, 1X/DAY
     Route: 048
     Dates: start: 2017
  4. FLONASE [Concomitant]
     Active Substance: FLUTICASONE PROPIONATE
     Indication: Seasonal allergy
     Dosage: 2 PUFFS, QM
     Route: 045
     Dates: start: 2018
  5. CETIRIZINE [Concomitant]
     Active Substance: CETIRIZINE HYDROCHLORIDE
     Indication: Seasonal allergy
     Dosage: 10 MG, 1X/DAY
     Route: 048
     Dates: start: 2018
  6. HAIR SKIN NAILS [Concomitant]
     Indication: Nutritional supplementation
     Dosage: 1 TAB, 1X/DAY
     Route: 048
     Dates: start: 201812
  7. HYDROCHLOROTHIAZIDE [Concomitant]
     Active Substance: HYDROCHLOROTHIAZIDE
     Indication: Hypertension
     Dosage: 12.5 MG, 1X/DAY
     Route: 048
     Dates: start: 2018
  8. GRAPESEED [Concomitant]
     Indication: Nutritional supplementation
     Dosage: 1 TAB, 1X/DAY, OIL
     Route: 048
     Dates: start: 20190319
  9. COENZYME Q10 [Concomitant]
     Active Substance: DIETARY SUPPLEMENT\UBIDECARENONE
     Indication: Nutritional supplementation
     Dosage: 100 MG, 1X/DAY
     Route: 048
     Dates: start: 20190319
  10. HERBALS\TURMERIC [Concomitant]
     Active Substance: HERBALS\TURMERIC
     Indication: Nutritional supplementation
     Dosage: 1 TAB, 1X/DAY
     Route: 048
     Dates: start: 20190319
  11. IRON [Concomitant]
     Active Substance: IRON
     Indication: Iron deficiency anaemia
     Dosage: 200 MG, 1X/DAY, SUPPLEMENTS
     Route: 048
     Dates: start: 20190922
  12. ENALAPRIL [Concomitant]
     Active Substance: ENALAPRIL
     Indication: Hypertension
     Dosage: 40 MG, 1X/DAY
     Route: 048
     Dates: start: 20201228
  13. CITALOPRAM [Concomitant]
     Active Substance: CITALOPRAM HYDROBROMIDE
     Indication: Depression
     Dosage: 20 MG, 1X/DAY
     Route: 048
     Dates: start: 20210711
  14. PRAVASTATIN [Concomitant]
     Active Substance: PRAVASTATIN
     Indication: Hyperlipidaemia
     Dosage: 40 MG, 1X/DAY
     Route: 048
     Dates: start: 20210711

REACTIONS (1)
  - Aortic stenosis [Recovering/Resolving]

NARRATIVE: CASE EVENT DATE: 20220201
